FAERS Safety Report 13454711 (Version 1)
Quarter: 2017Q2

REPORT INFORMATION
  Report Type: Spontaneous
  Country: US (occurrence: US)
  Receive Date: 20170418
  Receipt Date: 20170418
  Transmission Date: 20170830
  Serious: No
  Sender: FDA-Public Use
  Company Number: US-ALLERGAN-1680450US

PATIENT
  Sex: Female

DRUGS (1)
  1. LATISSE [Suspect]
     Active Substance: BIMATOPROST
     Indication: MADAROSIS
     Dosage: 4 GTT, QD
     Route: 061
     Dates: start: 20161021

REACTIONS (2)
  - Eyelid skin dryness [Not Recovered/Not Resolved]
  - Off label use [Unknown]
